FAERS Safety Report 14125587 (Version 1)
Quarter: 2017Q4

REPORT INFORMATION
  Report Type: Spontaneous
  Country: GB (occurrence: GB)
  Receive Date: 20171025
  Receipt Date: 20171025
  Transmission Date: 20180321
  Serious: Yes (Hospitalization, Other)
  Sender: FDA-Public Use
  Company Number: GB-TEVA-817984ROM

PATIENT
  Age: 82 Year
  Sex: Male

DRUGS (2)
  1. MYCOPHENOLATE MOFETIL. [Suspect]
     Active Substance: MYCOPHENOLATE MOFETIL
     Indication: LUPUS NEPHRITIS
     Dosage: FOR THE PREVIOUS 7 MONTHS
     Route: 065
  2. PREDNISOLONE. [Concomitant]
     Active Substance: PREDNISOLONE
     Indication: LUPUS NEPHRITIS
     Dosage: FOR THE PREVIOUS 7 MONTHS
     Route: 065

REACTIONS (4)
  - Off label use [Unknown]
  - Herpes zoster disseminated [Unknown]
  - Pneumonia [Unknown]
  - Purpura fulminans [Unknown]
